FAERS Safety Report 16958118 (Version 1)
Quarter: 2019Q4

REPORT INFORMATION
  Report Type: Report from Study
  Country: IT (occurrence: IT)
  Receive Date: 20191024
  Receipt Date: 20191024
  Transmission Date: 20200122
  Serious: Yes (Life-Threatening)
  Sender: FDA-Public Use
  Company Number: IT-MYLANLABS-2019M1100948

PATIENT
  Age: 23 Year
  Sex: Female

DRUGS (2)
  1. BACLOFENE MYLAN GENERICS 10 MG COMPRESSE [Suspect]
     Active Substance: BACLOFEN
     Indication: PRODUCT USED FOR UNKNOWN INDICATION
     Dosage: 10 DOSAGE FORM, TOTAL
     Route: 048
  2. LYRICA [Suspect]
     Active Substance: PREGABALIN
     Indication: PRODUCT USED FOR UNKNOWN INDICATION
     Dosage: 6 DOSAGE FORM, TOTAL
     Route: 048

REACTIONS (4)
  - Coma [Unknown]
  - Drug abuse [Unknown]
  - Intentional self-injury [Unknown]
  - Crying [Unknown]

NARRATIVE: CASE EVENT DATE: 20190428
